FAERS Safety Report 6966526-1 (Version None)
Quarter: 2010Q3

REPORT INFORMATION
  Report Type: 
  Country: None (occurrence: None)
  Receive Date: 20100906
  Receipt Date: 20100826
  Transmission Date: 20110219
  Serious: Yes (Other)
  Sender: FDA-Public Use
  Company Number: US-BIOGENIDEC-2010BI030444

PATIENT

DRUGS (3)
  1. AVONEX [Suspect]
     Indication: PRODUCT USED FOR UNKNOWN INDICATION
     Route: 030
     Dates: start: 20030501, end: 20070101
  2. AVONEX [Suspect]
     Route: 030
     Dates: start: 20070101, end: 20070101
  3. AVONEX [Suspect]
     Route: 030
     Dates: start: 20070101

REACTIONS (2)
  - NON-HODGKIN'S LYMPHOMA [None]
  - SJOGREN'S SYNDROME [None]
